FAERS Safety Report 4268664-3 (Version None)
Quarter: 2004Q1

REPORT INFORMATION
  Report Type: 
  Country: None (occurrence: None)
  Receive Date: 20040108
  Receipt Date: 20040105
  Transmission Date: 20041129
  Serious: Yes (Other)
  Sender: FDA-Public Use
  Company Number: 200314503BCC

PATIENT
  Age: 68 Year
  Sex: Female
  Weight: 70.3075 kg

DRUGS (5)
  1. BAYER WOMEN'S CAPLETS (ACETYLSALICYLATE CALCIUM) [Suspect]
     Indication: MYOCARDIAL INFARCTION
     Dosage: 81/300 MG, QD, ORAL
     Route: 048
     Dates: start: 20031030, end: 20031130
  2. BAYER WOMEN'S CAPLETS (ACETYLSALICYLATE CALCIUM) [Suspect]
     Indication: PROPHYLAXIS
     Dosage: 81/300 MG, QD, ORAL
     Route: 048
     Dates: start: 20031030, end: 20031130
  3. LISINOPRIL [Concomitant]
  4. ASPIRIN [Concomitant]
  5. PRINZIDE [Concomitant]

REACTIONS (2)
  - FALL [None]
  - SYNCOPE [None]
